FAERS Safety Report 23307663 (Version 4)
Quarter: 2024Q2

REPORT INFORMATION
  Report Type: Spontaneous
  Country: IE (occurrence: IE)
  Receive Date: 20231218
  Receipt Date: 20240402
  Transmission Date: 20240715
  Serious: Yes (Other)
  Sender: FDA-Public Use
  Company Number: IE-MYLANLABS-2023M1130905

PATIENT
  Age: 41 Year
  Sex: Female
  Weight: 58.3 kg

DRUGS (9)
  1. CLOZARIL [Suspect]
     Active Substance: CLOZAPINE
     Indication: Schizophrenia
     Dosage: 150 MILLIGRAM, BID
     Route: 048
     Dates: start: 20231016, end: 20231208
  2. ZOPICLONE [Concomitant]
     Active Substance: ZOPICLONE
     Dosage: 7.5 MILLIGRAM, QD
     Route: 065
  3. TRAZODONE [Concomitant]
     Active Substance: TRAZODONE HYDROCHLORIDE
     Dosage: 100 MILLIGRAM, QD
     Route: 065
  4. TRAZODONE [Concomitant]
     Active Substance: TRAZODONE HYDROCHLORIDE
     Dosage: 150 MILLIGRAM, QD
     Route: 065
  5. DIAZEPAM [Concomitant]
     Active Substance: DIAZEPAM
     Dosage: 5 MILLIGRAM, BID
     Route: 065
  6. EPILIM [Concomitant]
     Active Substance: VALPROATE SODIUM
     Dosage: 300 MILLIGRAM, QD
     Route: 065
  7. PROCYCLIDINE [Concomitant]
     Active Substance: PROCYCLIDINE
     Dosage: 5 MILLIGRAM, BID
     Route: 065
  8. GLUCOPHAGE [Concomitant]
     Active Substance: METFORMIN HYDROCHLORIDE
     Dosage: 500 MILLIGRAM, BID
     Route: 065
  9. KWELL [Concomitant]
     Active Substance: LINDANE
     Dosage: 1 DOSAGE FORM, BID
     Route: 065

REACTIONS (4)
  - Neutropenia [Recovered/Resolved]
  - Leukopenia [Recovered/Resolved]
  - COVID-19 [Recovering/Resolving]
  - Eosinophil count decreased [Not Recovered/Not Resolved]

NARRATIVE: CASE EVENT DATE: 20231129
